FAERS Safety Report 23591082 (Version 1)
Quarter: 2024Q1

REPORT INFORMATION
  Report Type: Spontaneous
  Country: US (occurrence: None)
  Receive Date: 20240301
  Receipt Date: 20240301
  Transmission Date: 20240409
  Serious: No
  Sender: FDA-Public Use
  Company Number: None

PATIENT
  Age: 65 Year
  Sex: Female

DRUGS (1)
  1. LENALIDOMIDE [Suspect]
     Active Substance: LENALIDOMIDE
     Indication: Neoplasm malignant
     Dosage: 10MG QD ORAL
     Route: 048
     Dates: start: 20210817

REACTIONS (4)
  - Palpitations [None]
  - Anxiety [None]
  - Gout [None]
  - Atrial fibrillation [None]

NARRATIVE: CASE EVENT DATE: 20240129
